FAERS Safety Report 8392756-0 (Version None)
Quarter: 2012Q2

REPORT INFORMATION
  Report Type: 
  Country: None (occurrence: None)
  Receive Date: 20120529
  Receipt Date: 20110926
  Transmission Date: 20120825
  Serious: No
  Sender: FDA-Public Use
  Company Number: US-MYLANLABS-2011S1020162

PATIENT
  Age: 47 Year
  Sex: Female

DRUGS (7)
  1. PEGASYS [Concomitant]
     Indication: HEPATITIS C
     Dates: start: 20101016
  2. PHENERGAN [Concomitant]
     Dates: start: 20101016
  3. RIBAVIRIN [Concomitant]
     Indication: HEPATITIS C
     Dates: start: 20101016
  4. DILAUDID [Concomitant]
     Dates: start: 20101016
  5. AMITRIPTYLINE HCL [Suspect]
  6. CYMBALTA [Concomitant]
     Dates: start: 20101016
  7. LYRICA [Concomitant]
     Indication: DEPRESSION
     Route: 048

REACTIONS (1)
  - DRUG HYPERSENSITIVITY [None]
